FAERS Safety Report 5247027-8 (Version None)
Quarter: 2007Q1

REPORT INFORMATION
  Report Type: 
  Country: None (occurrence: None)
  Receive Date: 20070226
  Receipt Date: 20070223
  Transmission Date: 20070707
  Serious: Yes (Hospitalization)
  Sender: FDA-Public Use
  Company Number: JP-GLAXOSMITHKLINE-B0459530A

PATIENT
  Age: 40 Year
  Sex: Male
  Weight: 70 kg

DRUGS (26)
  1. ALKERAN [Suspect]
     Indication: STEM CELL TRANSPLANT
     Route: 042
     Dates: start: 20060923, end: 20060924
  2. BUSULFAN [Suspect]
     Indication: STEM CELL TRANSPLANT
     Route: 048
     Dates: start: 20060920, end: 20060922
  3. FUROSEMIDE [Suspect]
     Route: 042
     Dates: start: 20061003, end: 20061007
  4. HABEKACIN [Suspect]
     Dates: start: 20061007, end: 20061008
  5. NEUTROGIN [Concomitant]
     Dates: start: 20060929, end: 20061006
  6. HAPTOGLOBIN [Concomitant]
     Dates: start: 20060926, end: 20060926
  7. HYDROCORTONE [Concomitant]
     Route: 042
     Dates: start: 20060926, end: 20060926
  8. HYDROXYZINE PAMOATE [Concomitant]
     Route: 042
     Dates: start: 20060921, end: 20061018
  9. EURODIN [Concomitant]
     Route: 048
     Dates: start: 20060921, end: 20061019
  10. PENTAZOCINE LACTATE [Concomitant]
     Dates: start: 20060930, end: 20061007
  11. ROPION [Concomitant]
     Route: 042
     Dates: start: 20061003, end: 20061007
  12. HYPEN [Concomitant]
     Route: 048
     Dates: start: 20061003, end: 20061008
  13. MAXIPIME [Concomitant]
     Route: 042
     Dates: start: 20061001, end: 20061002
  14. IMMUNE GLOBULIN INTRAVENOUS (HUMAN) [Concomitant]
     Route: 042
     Dates: start: 20061002, end: 20061004
  15. MEROPEN [Concomitant]
     Route: 042
     Dates: start: 20061003, end: 20061006
  16. VANCOMYCIN HYDROCHLORIDE [Concomitant]
     Route: 042
     Dates: start: 20061002, end: 20061006
  17. NEUART [Concomitant]
     Route: 042
     Dates: start: 20061004, end: 20061004
  18. GASTER [Concomitant]
     Route: 042
     Dates: start: 20061004, end: 20061009
  19. ZOVIRAX [Concomitant]
     Dates: start: 20060921, end: 20061006
  20. ZANTAC [Concomitant]
     Route: 048
     Dates: start: 20060921, end: 20061003
  21. SELBEX [Concomitant]
     Route: 048
     Dates: start: 20060921, end: 20061003
  22. BAKTAR [Concomitant]
     Route: 048
     Dates: start: 20060921, end: 20060925
  23. ITRACONAZOLE [Concomitant]
     Route: 048
     Dates: start: 20060921, end: 20061002
  24. LEVOFLOXACIN [Concomitant]
     Route: 048
     Dates: start: 20060921, end: 20060930
  25. URSO [Concomitant]
     Route: 048
     Dates: start: 20060921, end: 20061002
  26. MODACIN [Concomitant]
     Dates: start: 20061007, end: 20061016

REACTIONS (1)
  - PNEUMONIA [None]
